FAERS Safety Report 23691308 (Version 1)
Quarter: 2024Q2

REPORT INFORMATION
  Report Type: Spontaneous
  Country: ES (occurrence: ES)
  Receive Date: 20240401
  Receipt Date: 20240401
  Transmission Date: 20240716
  Serious: Yes (Hospitalization, Congenital Anomaly, Other)
  Sender: FDA-Public Use
  Company Number: ES-TAKEDA-2023TUS052348

PATIENT

DRUGS (9)
  1. HUMAN IMMUNOGLOBULIN G [Suspect]
     Active Substance: HUMAN IMMUNOGLOBULIN G
     Indication: Product used for unknown indication
     Dosage: UNK,UNK, QD
     Route: 064
  2. LACOSAMIDE [Suspect]
     Active Substance: LACOSAMIDE
     Indication: Foetal exposure during pregnancy
     Dosage: 200 MILLIGRAM, Q12H
     Route: 064
  3. LEVETIRACETAM [Suspect]
     Active Substance: LEVETIRACETAM
     Indication: Foetal exposure during pregnancy
     Dosage: 4000 MILLIGRAM, QD
     Route: 064
  4. LEVETIRACETAM [Suspect]
     Active Substance: LEVETIRACETAM
     Dosage: 4800 MILLIGRAM, QD
     Route: 064
  5. BRIVARACETAM [Suspect]
     Active Substance: BRIVARACETAM
     Indication: Foetal exposure during pregnancy
     Dosage: 100 MILLIGRAM, Q12H
     Route: 064
  6. VALPROIC ACID [Suspect]
     Active Substance: VALPROIC ACID
     Indication: Foetal exposure during pregnancy
     Dosage: 4800 MILLIGRAM, QOD
     Route: 064
  7. VALPROIC ACID [Suspect]
     Active Substance: VALPROIC ACID
     Dosage: 4800 MILLIGRAM, QD
     Route: 064
  8. PERAMPANEL [Suspect]
     Active Substance: PERAMPANEL
     Indication: Foetal exposure during pregnancy
     Dosage: 12 MILLIGRAM
     Route: 064
  9. PROPOFOL [Suspect]
     Active Substance: PROPOFOL
     Indication: Foetal exposure during pregnancy
     Dosage: 15 MILLILITER, Q1HR
     Route: 064

REACTIONS (7)
  - Premature baby [Unknown]
  - Patent ductus arteriosus [Unknown]
  - Pulmonary haemorrhage neonatal [Unknown]
  - Coagulopathy [Unknown]
  - Intestinal atresia [Unknown]
  - Pulmonary haemorrhage [Unknown]
  - Foetal exposure during pregnancy [Unknown]
